FAERS Safety Report 19465711 (Version 3)
Quarter: 2021Q3

REPORT INFORMATION
  Report Type: Spontaneous
  Country: US (occurrence: US)
  Receive Date: 20210626
  Receipt Date: 20210928
  Transmission Date: 20211014
  Serious: No
  Sender: FDA-Public Use
  Company Number: US-TAKEDA-2021TUS038087

PATIENT
  Sex: Female
  Weight: 78.91 kg

DRUGS (1)
  1. NINLARO [Suspect]
     Active Substance: IXAZOMIB CITRATE
     Indication: PLASMA CELL MYELOMA
     Dosage: 3 MILLIGRAM
     Route: 048
     Dates: start: 20210422

REACTIONS (8)
  - Diarrhoea [Unknown]
  - Rash [Not Recovered/Not Resolved]
  - Visual impairment [Unknown]
  - Memory impairment [Unknown]
  - Decreased appetite [Unknown]
  - Back pain [Unknown]
  - Alopecia [Unknown]
  - Confusional state [Unknown]
